FAERS Safety Report 15166105 (Version 3)
Quarter: 2018Q3

REPORT INFORMATION
  Report Type: Spontaneous
  Country: JP (occurrence: JP)
  Receive Date: 20180719
  Receipt Date: 20180724
  Transmission Date: 20181010
  Serious: Yes (Hospitalization, Other)
  Sender: FDA-Public Use
  Company Number: JP-PFIZER INC-2018290012

PATIENT
  Age: 72 Year
  Sex: Male
  Weight: 49 kg

DRUGS (15)
  1. CALONAL [Concomitant]
     Active Substance: ACETAMINOPHEN
     Dosage: UNK
     Dates: start: 20180219, end: 20180226
  2. SEISHOKU [Concomitant]
     Active Substance: SODIUM CHLORIDE
     Dosage: UNK
     Dates: start: 20180221, end: 20180306
  3. MUCODYNE [Concomitant]
     Active Substance: CARBOCYSTEINE
     Dosage: UNK
     Dates: start: 20180221, end: 20180226
  4. ALLEGRA [Concomitant]
     Active Substance: FEXOFENADINE HYDROCHLORIDE
     Dosage: UNK
     Dates: start: 20180221, end: 20180221
  5. PREDONINE /00016203/ [Concomitant]
     Active Substance: PREDNISOLONE SODIUM SUCCINATE
     Dosage: UNK
     Dates: start: 20180221, end: 20180306
  6. QUAZEPAM. [Concomitant]
     Active Substance: QUAZEPAM
     Dosage: UNK
     Dates: end: 20180226
  7. ZETIA [Concomitant]
     Active Substance: EZETIMIBE
     Dosage: UNK
     Dates: start: 20160909, end: 20180226
  8. RANITIDINE HYDROCHLORIDE. [Concomitant]
     Active Substance: RANITIDINE HYDROCHLORIDE
     Dosage: UNK
     Dates: start: 20180221, end: 20180224
  9. MEDICON /00048102/ [Concomitant]
     Active Substance: DEXTROMETHORPHAN HYDROBROMIDE
     Dosage: UNK
     Dates: start: 20180221, end: 20180226
  10. MEROPEN [Suspect]
     Active Substance: MEROPENEM
     Indication: PNEUMONIA
     Dosage: 1.5 G, DAILY
     Route: 041
     Dates: start: 20180221, end: 20180226
  11. RAPIACTA [Concomitant]
     Active Substance: PERAMIVIR
     Dosage: UNK
     Dates: start: 20180221, end: 20180221
  12. LOXONIN [Suspect]
     Active Substance: LOXOPROFEN SODIUM
     Indication: CHEST PAIN
     Dosage: 180 MG, DAILY
     Route: 048
     Dates: start: 20180221, end: 20180224
  13. VITAMIN B COMPLEX [Concomitant]
     Active Substance: CYANOCOBALAMIN\DEXPANTHENOL\NIACINAMIDE\PYRIDOXINE HYDROCHLORIDE\RIBOFLAVIN 5^-PHOSPHATE SODIUM\THIAMINE HYDROCHLORIDE\VITAMIN B COMPLEX
     Dosage: UNK
     Dates: start: 20180221, end: 20180301
  14. AMIGRAND [Concomitant]
     Dosage: UNK
     Dates: start: 20180221, end: 20180226
  15. HEPAFLUSH [Concomitant]
     Active Substance: HEPARIN SODIUM
     Dosage: UNK
     Dates: start: 20180221, end: 20180305

REACTIONS (1)
  - Interstitial lung disease [Recovered/Resolved]

NARRATIVE: CASE EVENT DATE: 20180223
